FAERS Safety Report 7128088-8 (Version None)
Quarter: 2010Q4

REPORT INFORMATION
  Report Type: 
  Country: None (occurrence: None)
  Receive Date: 20101130
  Receipt Date: 20101117
  Transmission Date: 20110411
  Serious: Yes (Hospitalization)
  Sender: FDA-Public Use
  Company Number: ES-CELGENEUS-144-50794-10112284

PATIENT
  Age: 72 Year
  Sex: Male

DRUGS (2)
  1. VIDAZA [Suspect]
     Route: 050
     Dates: start: 20100801
  2. VIDAZA [Suspect]
     Route: 050
     Dates: start: 20101001

REACTIONS (3)
  - APPENDICITIS PERFORATED [None]
  - DIVERTICULITIS [None]
  - THERAPEUTIC RESPONSE DECREASED [None]
